FAERS Safety Report 8317961-0 (Version None)
Quarter: 2012Q2

REPORT INFORMATION
  Report Type: 
  Country: None (occurrence: None)
  Receive Date: 20120427
  Receipt Date: 20120423
  Transmission Date: 20120825
  Serious: Yes (Life-Threatening, Hospitalization)
  Sender: FDA-Public Use
  Company Number: FR-ASTRAZENECA-2012SE26643

PATIENT
  Age: 25 Year
  Sex: Male

DRUGS (7)
  1. DEPAKOTE [Concomitant]
     Route: 048
  2. LEPTICUR [Suspect]
     Indication: SCHIZOPHRENIA, PARANOID TYPE
     Route: 048
     Dates: end: 20120407
  3. LORAZEPAM [Concomitant]
     Route: 048
  4. QUETIAPINE FUMARATE [Suspect]
     Indication: SCHIZOPHRENIA, PARANOID TYPE
     Route: 048
     Dates: end: 20120407
  5. CLOZAPINE [Suspect]
     Indication: SCHIZOPHRENIA, PARANOID TYPE
     Route: 048
     Dates: end: 20120407
  6. CLOPIXOL [Suspect]
     Indication: SCHIZOPHRENIA, PARANOID TYPE
     Route: 048
     Dates: end: 20120407
  7. PANTOPRAZOLE [Concomitant]
     Route: 048

REACTIONS (10)
  - MULTI-ORGAN FAILURE [None]
  - RENAL FAILURE [None]
  - DISSEMINATED INTRAVASCULAR COAGULATION [None]
  - SEPSIS [None]
  - COLITIS ISCHAEMIC [None]
  - HEPATIC FAILURE [None]
  - AGITATION [None]
  - CIRCULATORY COLLAPSE [None]
  - RASH MACULAR [None]
  - HYPERLACTACIDAEMIA [None]
